FAERS Safety Report 8697002 (Version 3)
Quarter: 2012Q4

REPORT INFORMATION
  Report Type: 
  Country: IT (occurrence: IT)
  Receive Date: 20120801
  Receipt Date: 20120831
  Transmission Date: 20130627
  Serious: Yes (Hospitalization, Other)
  Sender: FDA-Public Use
  Company Number: IT-PFIZER INC-2012184975

PATIENT
  Age: 36 Year
  Sex: Male

DRUGS (5)
  1. TORVAST [Suspect]
     Dosage: 10 mg, daily
     Route: 048
     Dates: start: 20120101, end: 20120715
  2. CLOZAPINE [Suspect]
     Indication: SCHIZOPHRENIA
     Dosage: 375 mg, daily
     Route: 048
     Dates: start: 20120521, end: 20120715
  3. TALOFEN [Suspect]
     Indication: SCHIZOPHRENIA
     Dosage: 45 Gtt, daily
     Route: 048
     Dates: start: 20120101, end: 20120715
  4. PANTORC [Concomitant]
     Dosage: 40 mg, UNK
     Route: 048
  5. DIAZEPAM [Concomitant]
     Dosage: 60 Gtt, UNK
     Route: 048

REACTIONS (7)
  - Blood creatine phosphokinase increased [Recovered/Resolved]
  - Myoglobin blood increased [Recovered/Resolved]
  - Decreased appetite [Recovered/Resolved]
  - Dyspepsia [Recovered/Resolved]
  - Constipation [Recovered/Resolved]
  - Weight decreased [Recovered/Resolved]
  - Hepatic lesion [Recovered/Resolved]
